FAERS Safety Report 7270053-4 (Version None)
Quarter: 2011Q1

REPORT INFORMATION
  Report Type: 
  Country: None (occurrence: None)
  Receive Date: 20110125
  Receipt Date: 20110111
  Transmission Date: 20110831
  Serious: Yes (Hospitalization)
  Sender: FDA-Public Use
  Company Number: 802551

PATIENT
  Age: 52 Year
  Sex: Male

DRUGS (3)
  1. CALCIUM FOLINATE [Suspect]
     Indication: COLORECTAL CANCER
     Dosage: 200MG/M^2 ON DAYS 1 AND 2
     Route: 041
  2. OXALIPLATIN [Suspect]
     Indication: COLORECTAL CANCER
     Dosage: 85 MG/M^2 ON DAY 1, EVERY 2 WEEKS
     Route: 041
  3. FLUOROURACIL [Suspect]
     Indication: COLORECTAL CANCER
     Dosage: (400 MG/M^2 ON DAYS 1 AND 2) (600 MG/M^2 ON DAYS 1 AND 2)
     Route: 042

REACTIONS (5)
  - TOXICITY TO VARIOUS AGENTS [None]
  - HAEMOLYTIC URAEMIC SYNDROME [None]
  - REFUSAL OF TREATMENT BY PATIENT [None]
  - RENAL FAILURE ACUTE [None]
  - DRUG INTERACTION [None]
